FAERS Safety Report 5781051-1 (Version None)
Quarter: 2008Q2

REPORT INFORMATION
  Report Type: 
  Country: None (occurrence: None)
  Receive Date: 20080620
  Receipt Date: 20080609
  Transmission Date: 20081010
  Serious: Yes (Other)
  Sender: FDA-Public Use
  Company Number: US-PFIZER INC-2008049601

PATIENT
  Sex: Female
  Weight: 181.4 kg

DRUGS (9)
  1. GABAPENTIN [Suspect]
     Indication: NEUROPATHY PERIPHERAL
     Route: 048
     Dates: start: 20060101, end: 20080301
  2. LASIX [Concomitant]
  3. LANTUS [Concomitant]
  4. POTASSIUM CHLORIDE [Concomitant]
  5. BUSPAR [Concomitant]
  6. COREG [Concomitant]
  7. ASPIRIN [Concomitant]
  8. LISINOPRIL [Concomitant]
  9. ALBUTEROL SULFATE AUTOHALER [Concomitant]

REACTIONS (2)
  - ABASIA [None]
  - HALLUCINATION, VISUAL [None]
